FAERS Safety Report 8810463 (Version 3)
Quarter: 2013Q1

REPORT INFORMATION
  Report Type: Spontaneous
  Country: US (occurrence: US)
  Receive Date: 20120927
  Receipt Date: 20130314
  Transmission Date: 20140127
  Serious: Yes (Hospitalization)
  Sender: FDA-Public Use
  Company Number: US-BIOGENIDEC-2012BI039935

PATIENT
  Age: 35 Year
  Sex: Male

DRUGS (1)
  1. TYSABRI [Suspect]
     Indication: MULTIPLE SCLEROSIS
     Route: 042
     Dates: start: 20070912

REACTIONS (11)
  - Acetabulum fracture [Not Recovered/Not Resolved]
  - Tibia fracture [Unknown]
  - Fibula fracture [Unknown]
  - Splenic rupture [Unknown]
  - Injury [Not Recovered/Not Resolved]
  - Post-traumatic amnestic disorder [Not Recovered/Not Resolved]
  - Upper limb fracture [Not Recovered/Not Resolved]
  - Rib fracture [Not Recovered/Not Resolved]
  - Pneumothorax [Unknown]
  - Joint dislocation [Unknown]
  - Arthralgia [Not Recovered/Not Resolved]
